FAERS Safety Report 9789923 (Version 1)
Quarter: 2013Q4

REPORT INFORMATION
  Report Type: Spontaneous
  Country: US (occurrence: US)
  Receive Date: 20131231
  Receipt Date: 20131231
  Transmission Date: 20140711
  Serious: Yes (Hospitalization)
  Sender: FDA-Public Use
  Company Number: US-JNJFOC-20131213984

PATIENT
  Age: 83 Year
  Sex: Male
  Weight: 51.26 kg

DRUGS (5)
  1. ZYTIGA [Suspect]
     Indication: PROSTATE CANCER
     Route: 048
     Dates: start: 201311
  2. MEGACE [Concomitant]
     Route: 065
  3. PREDNISONE [Concomitant]
     Indication: PROSTATE CANCER
     Route: 048
     Dates: start: 201311
  4. INDERAL [Concomitant]
     Route: 065
  5. BABY ASPIRIN [Concomitant]
     Route: 048

REACTIONS (4)
  - Metastases to liver [Unknown]
  - Metastases to lung [Unknown]
  - Immobile [Unknown]
  - Hospitalisation [Not Recovered/Not Resolved]
